FAERS Safety Report 19100260 (Version 1)
Quarter: 2021Q2

REPORT INFORMATION
  Report Type: Spontaneous
  Country: RU (occurrence: RU)
  Receive Date: 20210407
  Receipt Date: 20210407
  Transmission Date: 20210717
  Serious: Yes (Disabling)
  Sender: FDA-Public Use
  Company Number: RU-ASTRAZENECA-2021A247977

PATIENT
  Age: 6 Year
  Sex: Male

DRUGS (3)
  1. FLIXOTIDE [Concomitant]
     Active Substance: FLUTICASONE PROPIONATE
  2. SINUPRET [Concomitant]
     Active Substance: DIETARY SUPPLEMENT\HERBALS
  3. PULMICORT TURBUHALER [Suspect]
     Active Substance: BUDESONIDE
     Indication: ASTHMA
     Dosage: 0.5 OR 0.25 MG/ML THREE INHALATIONS A DAY
     Route: 055
     Dates: start: 2020

REACTIONS (2)
  - Condition aggravated [Not Recovered/Not Resolved]
  - Asthma [Not Recovered/Not Resolved]

NARRATIVE: CASE EVENT DATE: 2020
